FAERS Safety Report 16453263 (Version 2)
Quarter: 2021Q2

REPORT INFORMATION
  Report Type: Spontaneous
  Country: US (occurrence: US)
  Receive Date: 20190619
  Receipt Date: 20210617
  Transmission Date: 20210716
  Serious: No
  Sender: FDA-Public Use
  Company Number: US-ROCHE-2228428

PATIENT
  Sex: Female

DRUGS (11)
  1. CALTRATE [Concomitant]
     Active Substance: CALCIUM CARBONATE
  2. ZANTAC [Concomitant]
     Active Substance: RANITIDINE HYDROCHLORIDE
  3. PREDNISONE. [Concomitant]
     Active Substance: PREDNISONE
  4. ACTEMRA [Suspect]
     Active Substance: TOCILIZUMAB
     Indication: RHEUMATOID ARTHRITIS
     Dosage: DOSE: 400 MG 20 ML SDV.
     Route: 042
  5. VITAMIN B12 [Concomitant]
     Active Substance: CYANOCOBALAMIN
  6. AMITIZA [Concomitant]
     Active Substance: LUBIPROSTONE
  7. ACTEMRA [Suspect]
     Active Substance: TOCILIZUMAB
     Dosage: 80MG 4ML SDV
     Route: 042
  8. LEVOTHYROXINE SODIUM. [Concomitant]
     Active Substance: LEVOTHYROXINE SODIUM
  9. NORVASC [Concomitant]
     Active Substance: AMLODIPINE BESYLATE
  10. ALLEGRA ALLERGY [Concomitant]
     Active Substance: FEXOFENADINE HYDROCHLORIDE
  11. REGLAN [Concomitant]
     Active Substance: METOCLOPRAMIDE HYDROCHLORIDE

REACTIONS (1)
  - White blood cell count decreased [Recovered/Resolved]
